FAERS Safety Report 4276646-0 (Version None)
Quarter: 2004Q1

REPORT INFORMATION
  Report Type: 
  Country: None (occurrence: None)
  Receive Date: 20040120
  Receipt Date: 20040113
  Transmission Date: 20041129
  Serious: Yes (Hospitalization)
  Sender: FDA-Public Use
  Company Number: 2004193968US

PATIENT
  Age: 48 Year
  Sex: Female
  Weight: 73 kg

DRUGS (8)
  1. ELLENCE [Suspect]
     Indication: BREAST CANCER
     Dosage: 133 MG, CYCLIC, IV
     Route: 042
     Dates: start: 20031118, end: 20031209
  2. GEMZAR [Suspect]
     Indication: BREAST CANCER
     Dosage: 1424 MG, CYCLIC, IV
     Route: 042
     Dates: start: 20031118, end: 20031209
  3. TAXOTERE [Suspect]
     Indication: BREAST CANCER
     Dosage: 53 MG, CYCLIC, IV
     Route: 042
     Dates: start: 20031118, end: 20031209
  4. COUMADIN [Concomitant]
  5. COMPAZINE [Concomitant]
  6. ZOFRAN [Concomitant]
  7. PROMETHAZINE HYDROCHLORIDE SUPPOSITORY [Concomitant]
  8. DECADRON [Concomitant]

REACTIONS (6)
  - BLOOD AMYLASE INCREASED [None]
  - HEADACHE [None]
  - LIPASE INCREASED [None]
  - NAUSEA [None]
  - VOMITING [None]
  - WHITE BLOOD CELL COUNT DECREASED [None]
